FAERS Safety Report 17724254 (Version 2)
Quarter: 2020Q2

REPORT INFORMATION
  Report Type: Spontaneous
  Country: US (occurrence: US)
  Receive Date: 20200429
  Receipt Date: 20200630
  Transmission Date: 20200714
  Serious: Yes (Other)
  Sender: FDA-Public Use
  Company Number: US-VERTEX PHARMACEUTICALS-2020-009535

PATIENT
  Sex: Male

DRUGS (14)
  1. ALBUTEROL [SALBUTAMOL SULFATE] [Concomitant]
     Active Substance: ALBUTEROL SULFATE
  2. DIM [DICYCLOVERINE HYDROCHLORIDE;MEFENAMIC ACID] [Concomitant]
  3. BETACAROTENE [Concomitant]
     Active Substance: .BETA.-CAROTENE
  4. CREON [Concomitant]
     Active Substance: PANCRELIPASE AMYLASE\PANCRELIPASE LIPASE\PANCRELIPASE PROTEASE
  5. IRON [Concomitant]
     Active Substance: IRON
  6. BORON [Concomitant]
     Active Substance: BORON
  7. LORATADINE. [Concomitant]
     Active Substance: LORATADINE
  8. ACETYLCYSTEINE. [Concomitant]
     Active Substance: ACETYLCYSTEINE
  9. OMEPRAZOLE. [Concomitant]
     Active Substance: OMEPRAZOLE
  10. TRIKAFTA [Suspect]
     Active Substance: ELEXACAFTOR\IVACAFTOR\TEZACAFTOR
     Indication: CYSTIC FIBROSIS
     Dosage: 2 ORANGE TABS AM AND 1 BLUE TAB PM
     Route: 048
     Dates: start: 20191127, end: 20200424
  11. VITAMIN D [COLECALCIFEROL] [Concomitant]
     Active Substance: CHOLECALCIFEROL
  12. SODIUM CHLORIDE. [Concomitant]
     Active Substance: SODIUM CHLORIDE
  13. PULMOZYME [Concomitant]
     Active Substance: DORNASE ALFA
  14. IODINE. [Concomitant]
     Active Substance: IODINE

REACTIONS (12)
  - Haemangioma of skin [Not Recovered/Not Resolved]
  - Insomnia [Unknown]
  - Muscle twitching [Not Recovered/Not Resolved]
  - Dry eye [Unknown]
  - Tremor [Unknown]
  - Memory impairment [Unknown]
  - Muscle spasms [Not Recovered/Not Resolved]
  - Eye colour change [Unknown]
  - Pruritus [Recovering/Resolving]
  - Eye irritation [Unknown]
  - Fluid retention [Unknown]
  - Skin disorder [Unknown]

NARRATIVE: CASE EVENT DATE: 2020
